FAERS Safety Report 4887981-7 (Version None)
Quarter: 2006Q1

REPORT INFORMATION
  Report Type: 
  Country: None (occurrence: None)
  Receive Date: 20060123
  Receipt Date: 20050414
  Transmission Date: 20060701
  Serious: Yes (Other)
  Sender: FDA-Public Use
  Company Number: US-MERCK-0504USA02943

PATIENT
  Age: 53 Year
  Sex: Male

DRUGS (7)
  1. VIOXX [Suspect]
     Indication: RHEUMATOID ARTHRITIS
     Route: 048
     Dates: start: 20020101, end: 20040701
  2. VIOXX [Suspect]
     Indication: PAIN IN EXTREMITY
     Route: 048
     Dates: start: 20020101, end: 20040701
  3. TOPROL-XL [Concomitant]
     Indication: CARDIAC DISORDER
     Route: 065
  4. NORVASC [Concomitant]
     Indication: CHEST PAIN
     Route: 065
  5. NORVASC [Concomitant]
     Indication: CARDIAC DISORDER
     Route: 065
  6. DIURETIC (UNSPECIFIED) [Concomitant]
     Indication: HYPERTENSION
     Route: 065
  7. LIPITOR [Concomitant]
     Route: 065

REACTIONS (6)
  - ARTERIOSCLEROSIS [None]
  - CARDIAC DISORDER [None]
  - DYSPEPSIA [None]
  - HEART RATE IRREGULAR [None]
  - MITRAL VALVE PROLAPSE [None]
  - SWELLING [None]
